FAERS Safety Report 14168937 (Version 1)
Quarter: 2017Q4

REPORT INFORMATION
  Report Type: Spontaneous
  Country: US (occurrence: US)
  Receive Date: 20171107
  Receipt Date: 20171107
  Transmission Date: 20180321
  Serious: Yes (Other)
  Sender: FDA-Public Use
  Company Number: US-OTSUKA-2017_023701

PATIENT
  Age: 54 Year
  Sex: Male

DRUGS (1)
  1. REXULTI [Suspect]
     Active Substance: BREXPIPRAZOLE
     Indication: BIPOLAR DISORDER
     Dosage: 0.5 MG, UNK
     Route: 065
     Dates: start: 2017, end: 2017

REACTIONS (3)
  - Compulsive shopping [Recovering/Resolving]
  - Product use in unapproved indication [Unknown]
  - Gambling [Recovering/Resolving]

NARRATIVE: CASE EVENT DATE: 2017
